FAERS Safety Report 19201448 (Version 2)
Quarter: 2021Q2

REPORT INFORMATION
  Report Type: Spontaneous
  Country: US (occurrence: US)
  Receive Date: 20210430
  Receipt Date: 20210608
  Transmission Date: 20210717
  Serious: No
  Sender: FDA-Public Use
  Company Number: US-MYLANLABS-2021M1024502

PATIENT
  Age: 69 Year
  Sex: Female

DRUGS (1)
  1. FONDAPARINUX SODIUM INJECTION, USP [Suspect]
     Active Substance: FONDAPARINUX SODIUM
     Indication: ANTICOAGULANT THERAPY
     Dosage: 7.5 MILLIGRAM, QD
     Route: 058
     Dates: start: 20210421, end: 20210422

REACTIONS (3)
  - Joint dislocation [Not Recovered/Not Resolved]
  - Device difficult to use [Not Recovered/Not Resolved]
  - Product design issue [Unknown]

NARRATIVE: CASE EVENT DATE: 20210421
